FAERS Safety Report 8182948-8 (Version None)
Quarter: 2012Q1

REPORT INFORMATION
  Report Type: 
  Country: None (occurrence: None)
  Receive Date: 20120305
  Receipt Date: 20120224
  Transmission Date: 20120608
  Serious: Yes (Hospitalization)
  Sender: FDA-Public Use
  Company Number: US-BAYER-2011-104503

PATIENT
  Age: 33 Year
  Sex: Female
  Weight: 50 kg

DRUGS (5)
  1. OXYCONTIN [Concomitant]
     Dosage: 10 MG, BID
  2. PERCOCET [Concomitant]
     Dosage: 5/325 Q4H
  3. NAPROSYN [Concomitant]
     Dosage: BID
  4. YAZ [Suspect]
     Dosage: UNK
     Route: 048
     Dates: start: 20090801, end: 20091001
  5. ASPIRIN [Concomitant]
     Dosage: 325 MG, QD

REACTIONS (6)
  - PAIN [None]
  - INJURY [None]
  - PULMONARY EMBOLISM [None]
  - GENERAL PHYSICAL HEALTH DETERIORATION [None]
  - EMOTIONAL DISTRESS [None]
  - ANXIETY [None]
